FAERS Safety Report 23658079 (Version 2)
Quarter: 2024Q1

REPORT INFORMATION
  Report Type: Spontaneous
  Country: KR (occurrence: KR)
  Receive Date: 20240321
  Receipt Date: 20240326
  Transmission Date: 20240409
  Serious: Yes (Hospitalization, Other)
  Sender: FDA-Public Use
  Company Number: KR-DSJP-DSJ-2024-112095

PATIENT
  Age: 90 Year
  Sex: Female

DRUGS (3)
  1. EDOXABAN [Suspect]
     Active Substance: EDOXABAN
     Indication: Product used for unknown indication
     Dosage: 30 MG
     Route: 065
  2. BOTROPASE [BATROXOBIN] [Concomitant]
     Indication: Product used for unknown indication
     Dosage: 1 MG
     Route: 042
  3. HEMOSTATIC [Concomitant]
     Indication: Product used for unknown indication
     Dosage: 1 MG
     Route: 042

REACTIONS (2)
  - Cerebral haemorrhage [Unknown]
  - Fall [Unknown]

NARRATIVE: CASE EVENT DATE: 20240317
